FAERS Safety Report 13740407 (Version 1)
Quarter: 2017Q3

REPORT INFORMATION
  Report Type: Spontaneous
  Country: US (occurrence: US)
  Receive Date: 20170711
  Receipt Date: 20170711
  Transmission Date: 20171127
  Serious: No
  Sender: FDA-Public Use
  Company Number: US-ALKERMES INC.-ALK-2017-002029

PATIENT
  Age: 18 Year
  Sex: Male

DRUGS (4)
  1. MELATONIN [Concomitant]
     Active Substance: MELATONIN
     Indication: PRODUCT USED FOR UNKNOWN INDICATION
     Dosage: UNK, HS
  2. ABILIFY [Concomitant]
     Active Substance: ARIPIPRAZOLE
     Indication: PRODUCT USED FOR UNKNOWN INDICATION
     Dosage: 10 MG, UNK
     Route: 048
  3. ARISTADA [Suspect]
     Active Substance: ARIPIPRAZOLE LAUROXIL
     Indication: SCHIZOPHRENIA
     Dosage: 882 MG, QMO
     Route: 030
  4. DOCUSATE [Concomitant]
     Active Substance: DOCUSATE
     Indication: CONSTIPATION

REACTIONS (5)
  - Contusion [Unknown]
  - Fall [Unknown]
  - Underdose [Unknown]
  - Inappropriate schedule of drug administration [Unknown]
  - Syringe issue [Unknown]

NARRATIVE: CASE EVENT DATE: 20170522
